FAERS Safety Report 6175939-X (Version None)
Quarter: 2009Q2

REPORT INFORMATION
  Report Type: 
  Country: None (occurrence: None)
  Receive Date: 20090501
  Receipt Date: 20090428
  Transmission Date: 20091009
  Serious: Yes (Hospitalization, Other)
  Sender: FDA-Public Use
  Company Number: GB-ROXANE LABORATORIES, INC.-2009-RO-00410RO

PATIENT
  Age: 37 Year
  Sex: Male

DRUGS (3)
  1. FLECAINIDE ACETATE [Suspect]
     Route: 048
  2. MAGNESIUM SULFATE [Suspect]
     Indication: PROPHYLAXIS
  3. FLUIDS [Concomitant]
     Indication: HYPOTENSION
     Route: 042

REACTIONS (9)
  - ACIDOSIS [None]
  - BRUGADA SYNDROME [None]
  - CHEST DISCOMFORT [None]
  - DRUG TOXICITY [None]
  - DYSPNOEA [None]
  - HYPOTENSION [None]
  - OVERDOSE [None]
  - TACHYCARDIA [None]
  - VENTRICULAR TACHYCARDIA [None]
